FAERS Safety Report 6622492-X (Version None)
Quarter: 2010Q1

REPORT INFORMATION
  Report Type: 
  Country: None (occurrence: None)
  Receive Date: 20100310
  Receipt Date: 20100202
  Transmission Date: 20100710
  Serious: No
  Sender: FDA-Public Use
  Company Number: US-BIOGENIDEC-2010BI003570

PATIENT
  Age: 57 Year
  Sex: Female

DRUGS (3)
  1. AVONEX [Suspect]
     Indication: MULTIPLE SCLEROSIS
     Route: 030
     Dates: start: 20000101, end: 20030101
  2. AVONEX [Suspect]
     Route: 030
     Dates: start: 20030101, end: 20091201
  3. AVONEX [Suspect]
     Route: 030
     Dates: start: 20100101

REACTIONS (4)
  - HYPOAESTHESIA [None]
  - MOBILITY DECREASED [None]
  - PAIN [None]
  - URINARY INCONTINENCE [None]
